FAERS Safety Report 5390699-8 (Version None)
Quarter: 2007Q3

REPORT INFORMATION
  Report Type: 
  Country: None (occurrence: None)
  Receive Date: 20070716
  Receipt Date: 20070613
  Transmission Date: 20080115
  Serious: Yes (Life-Threatening, Hospitalization)
  Sender: FDA-Public Use
  Company Number: 003#3#2007-00116

PATIENT
  Age: 71 Year
  Sex: Female

DRUGS (11)
  1. ELANTAN-LA-DOSE-UNKNOWN (ISOSORBIDE MONONITRATE) [Suspect]
     Indication: BLOOD PRESSURE INCREASED
     Dates: start: 20070420
  2. CO-TENIDONE (ATENOLOL, CHLORTALIDONE) [Suspect]
     Indication: BLOOD PRESSURE INCREASED
     Route: 048
     Dates: start: 20040624, end: 20070516
  3. VERAPAMIL HCL [Suspect]
     Indication: HYPERTENSION
     Dosage: 1 DF
     Dates: start: 20070515, end: 20070516
  4. AMLODIPINE [Concomitant]
  5. BENDROFLUAZIDE                     (BENDROFLUMETHIAZIDE) [Concomitant]
  6. CO-DYDRAMOL                     (DIHYDROCODEINE BITARTRATE, PARACETAMO [Concomitant]
  7. DICLOFENAC SODIUM [Concomitant]
  8. LANSOPRAZOLE [Concomitant]
  9. ATORVASTATIN CALCIUM [Concomitant]
  10. LISINOPRIL [Concomitant]
  11. ZOPICLONE             (ZOPICLONE) [Concomitant]

REACTIONS (1)
  - ATRIOVENTRICULAR BLOCK COMPLETE [None]
